FAERS Safety Report 4789439-2 (Version None)
Quarter: 2005Q4

REPORT INFORMATION
  Report Type: 
  Country: None (occurrence: None)
  Receive Date: 20051004
  Receipt Date: 20051004
  Transmission Date: 20060501
  Serious: Yes (Hospitalization)
  Sender: FDA-Public Use
  Company Number: None

PATIENT
  Sex: Female

DRUGS (3)
  1. WARFARIN SODIUM [Suspect]
     Indication: ATRIAL FIBRILLATION
     Dosage: 5 MG PO QD
     Route: 048
  2. FUROSEMIDE [Concomitant]
  3. ENALAPRIL [Concomitant]

REACTIONS (6)
  - DYSPNOEA [None]
  - FALL [None]
  - HAEMORRHAGE [None]
  - INTERNATIONAL NORMALISED RATIO INCREASED [None]
  - PULMONARY HAEMATOMA [None]
  - SYNCOPE [None]
